FAERS Safety Report 6609004-1 (Version None)
Quarter: 2010Q1

REPORT INFORMATION
  Report Type: 
  Country: None (occurrence: None)
  Receive Date: 20100225
  Receipt Date: 20100225
  Transmission Date: 20100710
  Serious: Yes (Life-Threatening, Hospitalization, Other)
  Sender: FDA-Public Use
  Company Number: None

PATIENT
  Age: 39 Year
  Sex: Male
  Weight: 83.9154 kg

DRUGS (1)
  1. ACCUTANE [Suspect]
     Indication: ACNE
     Dosage: 2 PER DAY
     Dates: start: 19950101, end: 19950829

REACTIONS (6)
  - FACIAL PAIN [None]
  - FEELING ABNORMAL [None]
  - GASTRIC DISORDER [None]
  - HEADACHE [None]
  - MIGRAINE [None]
  - SUICIDE ATTEMPT [None]
